FAERS Safety Report 22976067 (Version 2)
Quarter: 2023Q4

REPORT INFORMATION
  Report Type: Report from Study
  Country: US (occurrence: US)
  Receive Date: 20230925
  Receipt Date: 20231023
  Transmission Date: 20240110
  Serious: Yes (Hospitalization)
  Sender: FDA-Public Use
  Company Number: US-ABBVIE-5420250

PATIENT
  Sex: Male

DRUGS (1)
  1. HUMIRA [Suspect]
     Active Substance: ADALIMUMAB
     Indication: Psoriasis
     Dosage: FORM STRENGTH- 40 MILLIGRAM, HUMIRA CITRATE FREE PEN
     Route: 058
     Dates: start: 20230516, end: 202309

REACTIONS (4)
  - Pelvic fracture [Unknown]
  - Scapula fracture [Unknown]
  - Psoriasis [Unknown]
  - Fall [Unknown]

NARRATIVE: CASE EVENT DATE: 20230101
